FAERS Safety Report 17813643 (Version 2)
Quarter: 2020Q2

REPORT INFORMATION
  Report Type: Spontaneous
  Country: HR (occurrence: HR)
  Receive Date: 20200521
  Receipt Date: 20200522
  Transmission Date: 20200714
  Serious: Yes (Other)
  Sender: FDA-Public Use
  Company Number: HR-PFIZER INC-2020200660

PATIENT
  Age: 12 Year
  Sex: Female

DRUGS (3)
  1. RINOLAN [Suspect]
     Active Substance: LORATADINE
     Dosage: 300 MILLIGRAM, QD
     Route: 048
     Dates: start: 20200108, end: 20200108
  2. CAFFETIN [CAFFEINE;CODEINE PHOSPHATE SESQUIHYDRATE;PARACETAMOL;PROPYPH [Suspect]
     Active Substance: ACETAMINOPHEN\CAFFEINE\CODEINE\PROPYPHENAZONE
     Dosage: 1 DF, 1X/DAY
     Route: 048
     Dates: start: 20200108, end: 20200108
  3. CONTROLOC [Suspect]
     Active Substance: PANTOPRAZOLE SODIUM
     Dosage: UNK UNK, QD
     Route: 048
     Dates: start: 20200108, end: 20200108

REACTIONS (2)
  - Suicide attempt [Unknown]
  - Intentional overdose [Unknown]

NARRATIVE: CASE EVENT DATE: 20200108
